FAERS Safety Report 13331787 (Version 1)
Quarter: 2017Q1

REPORT INFORMATION
  Report Type: Spontaneous
  Country: US (occurrence: US)
  Receive Date: 20170313
  Receipt Date: 20170313
  Transmission Date: 20170428
  Serious: Yes (Other)
  Sender: FDA-Public Use
  Company Number: US-JNJFOC-20170305619

PATIENT
  Age: 4 Decade
  Sex: Male
  Weight: 72.58 kg

DRUGS (9)
  1. ZYRTEC [Suspect]
     Active Substance: CETIRIZINE HYDROCHLORIDE
     Indication: PRURITUS
     Dosage: DROPPED DOWN TO 1 TABLET A DAY
     Route: 048
  2. ZYRTEC [Suspect]
     Active Substance: CETIRIZINE HYDROCHLORIDE
     Indication: URTICARIA
     Dosage: STARTED WITH 2 TABLETS,
     Route: 048
  3. ZYRTEC [Suspect]
     Active Substance: CETIRIZINE HYDROCHLORIDE
     Indication: SKIN IRRITATION
     Dosage: AND WITH THE CURRENT BOTTLE HE TAKES 1/2 TABLET A DAY AT THE 36 HOUR
     Route: 048
  4. ZYRTEC [Suspect]
     Active Substance: CETIRIZINE HYDROCHLORIDE
     Indication: SKIN IRRITATION
     Dosage: DROPPED DOWN TO 1 TABLET A DAY
     Route: 048
  5. ZYRTEC [Suspect]
     Active Substance: CETIRIZINE HYDROCHLORIDE
     Indication: URTICARIA
     Dosage: AND WITH THE CURRENT BOTTLE HE TAKES 1/2 TABLET A DAY AT THE 36 HOUR
     Route: 048
  6. ZYRTEC [Suspect]
     Active Substance: CETIRIZINE HYDROCHLORIDE
     Indication: PRURITUS
     Dosage: STARTED WITH 2 TABLETS,
     Route: 048
  7. ZYRTEC [Suspect]
     Active Substance: CETIRIZINE HYDROCHLORIDE
     Indication: SKIN IRRITATION
     Dosage: STARTED WITH 2 TABLETS,
     Route: 048
  8. ZYRTEC [Suspect]
     Active Substance: CETIRIZINE HYDROCHLORIDE
     Indication: PRURITUS
     Dosage: AND WITH THE CURRENT BOTTLE HE TAKES 1/2 TABLET A DAY AT THE 36 HOUR
     Route: 048
  9. ZYRTEC [Suspect]
     Active Substance: CETIRIZINE HYDROCHLORIDE
     Indication: URTICARIA
     Dosage: DROPPED DOWN TO 1 TABLET A DAY
     Route: 048

REACTIONS (6)
  - Therapeutic response unexpected [Unknown]
  - Drug dependence [Unknown]
  - Incorrect dose administered [Unknown]
  - Off label use [Unknown]
  - Overdose [Unknown]
  - Drug ineffective for unapproved indication [Unknown]
